FAERS Safety Report 5266001-9 (Version None)
Quarter: 2007Q1

REPORT INFORMATION
  Report Type: 
  Country: None (occurrence: None)
  Receive Date: 20070315
  Receipt Date: 20070306
  Transmission Date: 20070707
  Serious: Yes (Other)
  Sender: FDA-Public Use
  Company Number: DEWYE058708JAN07

PATIENT
  Sex: Female
  Weight: 69 kg

DRUGS (3)
  1. VENLAFAXINE HCL [Suspect]
     Indication: DEPRESSION
     Route: 048
     Dates: start: 20060914, end: 20070301
  2. AMOXICILLIN [Concomitant]
     Indication: STREPTOCOCCAL INFECTION
     Dosage: UNKNOWN
     Dates: start: 20061212, end: 20061222
  3. FOLIC ACID [Concomitant]
     Indication: PROPHYLAXIS

REACTIONS (6)
  - ANTEPARTUM HAEMORRHAGE [None]
  - CERVICAL INCOMPETENCE [None]
  - DRUG EXPOSURE DURING PREGNANCY [None]
  - DYSGEUSIA [None]
  - PREMATURE LABOUR [None]
  - TACHYCARDIA [None]
